FAERS Safety Report 11767708 (Version 2)
Quarter: 2016Q1

REPORT INFORMATION
  Report Type: Other
  Country: US (occurrence: US)
  Receive Date: 20151123
  Receipt Date: 20160218
  Transmission Date: 20160525
  Serious: No
  Sender: FDA-Public Use
  Company Number: US-APOTEX-2015AP012728

PATIENT
  Sex: Female

DRUGS (1)
  1. MODAFINIL TABLETS USP [Suspect]
     Active Substance: MODAFINIL
     Indication: NARCOLEPSY
     Dosage: 1 TABLET AT 9 A.M. IN THE MORNING AND SECOND TABLET AT NOON
     Route: 065

REACTIONS (2)
  - Product substitution issue [Not Recovered/Not Resolved]
  - Drug ineffective [Not Recovered/Not Resolved]
